FAERS Safety Report 9912673 (Version 2)
Quarter: 2014Q1

REPORT INFORMATION
  Report Type: Report from Study
  Country: US (occurrence: US)
  Receive Date: 20140220
  Receipt Date: 20140310
  Transmission Date: 20141002
  Serious: Yes (Death)
  Sender: FDA-Public Use
  Company Number: US-ROCHE-1351449

PATIENT
  Sex: Female

DRUGS (5)
  1. AVASTIN [Suspect]
     Indication: PRODUCT USED FOR UNKNOWN INDICATION
     Route: 042
  2. TAXOTERE [Concomitant]
     Route: 042
     Dates: start: 20130418, end: 20131009
  3. TOPOTECAN [Concomitant]
     Route: 042
     Dates: start: 20130807, end: 20131009
  4. TAXOL [Concomitant]
     Route: 042
     Dates: start: 20130221, end: 20130807
  5. CISPLATIN [Concomitant]
     Route: 042
     Dates: start: 20130221, end: 20130718

REACTIONS (1)
  - Cervix cancer metastatic [Fatal]
